FAERS Safety Report 8011324-3 (Version None)
Quarter: 2011Q4

REPORT INFORMATION
  Report Type: 
  Country: None (occurrence: None)
  Receive Date: 20111228
  Receipt Date: 20111222
  Transmission Date: 20120403
  Serious: Yes (Hospitalization, Congenital Anomaly, Other)
  Sender: FDA-Public Use
  Company Number: US-PFIZER INC-2011159707

PATIENT
  Sex: Female
  Weight: 4 kg

DRUGS (2)
  1. SERTRALINE HYDROCHLORIDE [Suspect]
     Indication: DEPRESSION
     Dosage: 100 MG ONE TABLET DAILY
     Route: 064
     Dates: start: 20060101
  2. ZOLOFT [Suspect]
     Indication: DEPRESSION
     Dosage: 100 MG ONE TABLET DAILY
     Route: 064
     Dates: start: 20050613

REACTIONS (9)
  - MATERNAL EXPOSURE TIMING UNSPECIFIED [None]
  - ANAL ATRESIA [None]
  - PERSISTENT CLOACA [None]
  - FEMALE GENITAL TRACT FISTULA [None]
  - CAUDAL REGRESSION SYNDROME [None]
  - VACTERL SYNDROME [None]
  - CONUS MEDULLARIS SYNDROME [None]
  - VESICOURETERIC REFLUX [None]
  - SYRINGOMYELIA [None]
